FAERS Safety Report 20702101 (Version 1)
Quarter: 2022Q2

REPORT INFORMATION
  Report Type: Spontaneous
  Country: US (occurrence: US)
  Receive Date: 20220412
  Receipt Date: 20220412
  Transmission Date: 20220721
  Serious: No
  Sender: FDA-Public Use
  Company Number: US-PFIZER INC-2021801228

PATIENT
  Age: 13 Year
  Sex: Female
  Weight: 68.04 kg

DRUGS (1)
  1. ZARONTIN [Suspect]
     Active Substance: ETHOSUXIMIDE
     Indication: Epilepsy
     Dosage: 250 MG, 3X/DAY (IN MORNING, AFTERNOON, AND NIGHT)
     Route: 048
     Dates: start: 2017

REACTIONS (2)
  - Abdominal pain upper [Unknown]
  - Somnolence [Unknown]
